FAERS Safety Report 17844047 (Version 1)
Quarter: 2020Q2

REPORT INFORMATION
  Report Type: Spontaneous
  Country: US (occurrence: US)
  Receive Date: 20200601
  Receipt Date: 20200601
  Transmission Date: 20200714
  Serious: No
  Sender: FDA-Public Use
  Company Number: US-BIOGEN-2020BI00869035

PATIENT
  Age: 45 Year
  Sex: Female

DRUGS (3)
  1. TECFIDERA [Suspect]
     Active Substance: DIMETHYL FUMARATE
     Indication: MULTIPLE SCLEROSIS
     Route: 048
     Dates: start: 20200423, end: 20200507
  2. TECFIDERA [Suspect]
     Active Substance: DIMETHYL FUMARATE
     Route: 048
     Dates: start: 20200424, end: 20200518
  3. TECFIDERA [Suspect]
     Active Substance: DIMETHYL FUMARATE
     Route: 048
     Dates: start: 20200501

REACTIONS (15)
  - Paraesthesia [Not Recovered/Not Resolved]
  - Mood swings [Recovered/Resolved]
  - Balance disorder [Recovered/Resolved]
  - Flatulence [Not Recovered/Not Resolved]
  - Hepatic enzyme increased [Unknown]
  - Memory impairment [Recovered/Resolved]
  - Coordination abnormal [Recovered/Resolved]
  - White blood cell count abnormal [Unknown]
  - Nervousness [Not Recovered/Not Resolved]
  - Visual impairment [Unknown]
  - Confusional state [Recovered/Resolved]
  - Abdominal distension [Not Recovered/Not Resolved]
  - Tremor [Recovered/Resolved]
  - Chromaturia [Unknown]
  - Pain [Not Recovered/Not Resolved]

NARRATIVE: CASE EVENT DATE: 20200424
